FAERS Safety Report 10038854 (Version 1)
Quarter: 2014Q1

REPORT INFORMATION
  Report Type: Spontaneous
  Country: US (occurrence: US)
  Receive Date: 20140326
  Receipt Date: 20140326
  Transmission Date: 20141002
  Serious: Yes (Hospitalization)
  Sender: FDA-Public Use
  Company Number: US-GLAXOSMITHKLINE-A1066747A

PATIENT
  Age: 74 Year
  Sex: Female

DRUGS (2)
  1. VENTOLIN [Suspect]
     Indication: RESPIRATORY DISORDER
     Dosage: 90MCG UNKNOWN
     Route: 065
  2. ADVAIR HFA [Suspect]
     Indication: RESPIRATORY DISORDER
     Route: 065

REACTIONS (1)
  - Investigation [Not Recovered/Not Resolved]
